FAERS Safety Report 7280257-2 (Version None)
Quarter: 2011Q1

REPORT INFORMATION
  Report Type: 
  Country: None (occurrence: None)
  Receive Date: 20110208
  Receipt Date: 20101110
  Transmission Date: 20110831
  Serious: Yes (Hospitalization)
  Sender: FDA-Public Use
  Company Number: US-BAYER-201029651NA

PATIENT
  Sex: Female
  Weight: 56.689 kg

DRUGS (5)
  1. YASMIN [Suspect]
     Indication: ACNE
  2. YAZ [Suspect]
     Indication: CONTRACEPTION
     Dosage: UNK
     Dates: start: 20081101, end: 20081201
  3. YAZ [Suspect]
     Indication: ACNE
  4. YASMIN [Suspect]
     Indication: CONTRACEPTION
     Dosage: UNK
     Dates: start: 20081101, end: 20081201
  5. PREVACID [Concomitant]
     Indication: GASTROOESOPHAGEAL REFLUX DISEASE
     Dosage: UNK MG, UNK
     Route: 048

REACTIONS (3)
  - RIB EXCISION [None]
  - DEEP VEIN THROMBOSIS [None]
  - SUBCLAVIAN VEIN THROMBOSIS [None]
